FAERS Safety Report 8856416 (Version 1)
Quarter: 2012Q4

REPORT INFORMATION
  Report Type: Spontaneous
  Country: DE (occurrence: None)
  Receive Date: 20121019
  Receipt Date: 20121019
  Transmission Date: 20130627
  Serious: Yes (Other)
  Sender: FDA-Public Use
  Company Number: GER/GER/12/0026221

PATIENT
  Age: 31 Year
  Sex: Female
  Weight: 150 kg

DRUGS (6)
  1. DOPEGYT (METHYLDOPA) [Concomitant]
  2. NOVORAPID (INSULIN ASPART) [Concomitant]
  3. PROTAPHANE (INSULIN HUMAN INJECTION, ISOPHANE) [Concomitant]
  4. METFORMIN (METFORMIN) [Suspect]
     Indication: TYPE 2 DIABETES MELLITUS
     Route: 048
     Dates: start: 20090709, end: 20100126
  5. RAMIPRIL (RAMIPRIL) [Suspect]
     Indication: HYPERTENSION
     Route: 048
     Dates: start: 20090709, end: 20100126
  6. METOPROLOL (METOPROLOL) [Concomitant]

REACTIONS (5)
  - Transaminases increased [None]
  - HELLP syndrome [None]
  - Platelet count decreased [None]
  - Premature delivery [None]
  - Caesarean section [None]
